FAERS Safety Report 20956752 (Version 3)
Quarter: 2022Q2

REPORT INFORMATION
  Report Type: Report from Study
  Country: US (occurrence: US)
  Receive Date: 20220614
  Receipt Date: 20220620
  Transmission Date: 20220721
  Serious: No
  Sender: FDA-Public Use
  Company Number: US-NOVARTISTESTPH-NVSC2022US135480

PATIENT
  Age: 75 Year
  Sex: Female
  Weight: 99.79 kg

DRUGS (2)
  1. ENTRESTO [Suspect]
     Active Substance: SACUBITRIL\VALSARTAN
     Indication: Cardiac failure congestive
     Dosage: 24.26 MG, BID
     Route: 048
     Dates: start: 20220526
  2. ENTRESTO [Suspect]
     Active Substance: SACUBITRIL\VALSARTAN
     Dosage: 24.26 MG, QID
     Route: 048

REACTIONS (1)
  - Intentional product misuse [Not Recovered/Not Resolved]

NARRATIVE: CASE EVENT DATE: 20220608
